FAERS Safety Report 7580093-3 (Version None)
Quarter: 2011Q2

REPORT INFORMATION
  Report Type: 
  Country: None (occurrence: None)
  Receive Date: 20110629
  Receipt Date: 20110627
  Transmission Date: 20111010
  Serious: Yes (Hospitalization, Other)
  Sender: FDA-Public Use
  Company Number: CA-ELI_LILLY_AND_COMPANY-CA201106007507

PATIENT
  Sex: Female

DRUGS (4)
  1. HALDOL [Concomitant]
  2. RISPERDAL [Concomitant]
  3. ZYPREXA [Suspect]
     Indication: SCHIZOPHRENIA, PARANOID TYPE
     Dosage: 2.5 MG, EACH EVENING
  4. ZYPREXA [Suspect]
     Dosage: 5 MG, EACH EVENING

REACTIONS (6)
  - DIABETIC COMA [None]
  - BLOOD PRESSURE INCREASED [None]
  - SYNCOPE [None]
  - PSORIASIS [None]
  - HEART RATE INCREASED [None]
  - DIABETES MELLITUS [None]
